FAERS Safety Report 25995504 (Version 1)
Quarter: 2025Q4

REPORT INFORMATION
  Report Type: Spontaneous
  Country: US (occurrence: US)
  Receive Date: 20251104
  Receipt Date: 20251104
  Transmission Date: 20260117
  Serious: No
  Sender: CELLTRION
  Company Number: US-CELLTRION INC.-2025US012849

PATIENT

DRUGS (1)
  1. INFLECTRA [Suspect]
     Active Substance: INFLIXIMAB-DYYB
     Indication: Proctitis ulcerative
     Dosage: 5 MG/KG (400 MG) AT WEEKS 0. 2, 6 THEN Q 8
     Route: 042

REACTIONS (2)
  - Intentional product use issue [Unknown]
  - Off label use [Unknown]
